FAERS Safety Report 24773010 (Version 4)
Quarter: 2025Q2

REPORT INFORMATION
  Report Type: Report from Study
  Country: US (occurrence: US)
  Receive Date: 20241225
  Receipt Date: 20250404
  Transmission Date: 20250717
  Serious: Yes (Hospitalization, Other)
  Sender: ABBVIE
  Company Number: US-ABBVIE-6060994

PATIENT
  Age: 74 Year
  Sex: Female
  Weight: 70 kg

DRUGS (14)
  1. CREON [Suspect]
     Active Substance: PANCRELIPASE AMYLASE\PANCRELIPASE LIPASE\PANCRELIPASE PROTEASE
     Indication: Pancreatic failure
     Dosage: 2 CAPSULE?FORM STRENGTH: 36000 UNIT
     Route: 048
     Dates: start: 202412
  2. CREON [Suspect]
     Active Substance: PANCRELIPASE AMYLASE\PANCRELIPASE LIPASE\PANCRELIPASE PROTEASE
     Indication: Pancreatic failure
     Dosage: LAST ADMIN DATE: NOV 2024?FORM STRENGTH: 36000 UNIT?2 CAPSULE?2 PER MEAL, 2 PER SNACK
     Route: 048
     Dates: start: 2023
  3. VITAMIN C [Concomitant]
     Active Substance: ASCORBIC ACID
     Indication: Product used for unknown indication
  4. VITAMIN B12 [Concomitant]
     Active Substance: CYANOCOBALAMIN
     Indication: Product used for unknown indication
  5. DULOXETINE [Concomitant]
     Active Substance: DULOXETINE
     Indication: Anxiety
  6. PANTOPRAZOLE [Concomitant]
     Active Substance: PANTOPRAZOLE
     Indication: Gastrooesophageal reflux disease
  7. POTASSIUM [Concomitant]
     Active Substance: POTASSIUM
     Indication: Product used for unknown indication
  8. MAGNESIUM [Concomitant]
     Active Substance: MAGNESIUM
     Indication: Product used for unknown indication
  9. PROLIA [Concomitant]
     Active Substance: DENOSUMAB
     Indication: Osteoporosis
  10. SUCRALFATE [Concomitant]
     Active Substance: SUCRALFATE
     Indication: Pancreatic failure
  11. HALOPERIDOL [Concomitant]
     Active Substance: HALOPERIDOL
     Indication: Product used for unknown indication
  12. ASPIRIN [Concomitant]
     Active Substance: ASPIRIN
     Indication: Product used for unknown indication
  13. FENOFIBRATE [Concomitant]
     Active Substance: FENOFIBRATE
     Indication: Product used for unknown indication
  14. LEVOTHYROXINE [Concomitant]
     Active Substance: LEVOTHYROXINE
     Indication: Thyroid disorder

REACTIONS (18)
  - Pancreatic pseudocyst [Recovering/Resolving]
  - Sepsis [Recovered/Resolved]
  - Atrial fibrillation [Recovered/Resolved]
  - Jaundice [Recovered/Resolved]
  - Decreased appetite [Recovered/Resolved]
  - Pancreatitis [Recovered/Resolved]
  - Anxiety [Recovered/Resolved]
  - Cardiac failure [Recovered/Resolved]
  - Drain site complication [Unknown]
  - Dyspnoea [Recovered/Resolved]
  - Hyperparathyroidism [Recovering/Resolving]
  - Abdominal pain upper [Recovering/Resolving]
  - Renal failure [Recovered/Resolved]
  - Respiratory arrest [Recovered/Resolved]
  - Blood calcium increased [Recovering/Resolving]
  - Transfusion [Recovered/Resolved]
  - Hepatic failure [Recovered/Resolved]
  - Pyrexia [Recovered/Resolved]

NARRATIVE: CASE EVENT DATE: 20240901
